FAERS Safety Report 8496239-9 (Version None)
Quarter: 2012Q3

REPORT INFORMATION
  Report Type: 
  Country: None (occurrence: None)
  Receive Date: 20120709
  Receipt Date: 20120702
  Transmission Date: 20120928
  Serious: Yes (Life-Threatening)
  Sender: FDA-Public Use
  Company Number: RU-CELGENEUS-251-C5013-12041020

PATIENT
  Sex: Female
  Weight: 64 kg

DRUGS (3)
  1. LENALIDOMIDE [Suspect]
     Route: 048
     Dates: start: 20120403
  2. LENALIDOMIDE [Suspect]
     Dosage: 2.5 MILLIGRAM
     Route: 048
     Dates: start: 20120110
  3. VALTREX [Concomitant]
     Route: 065
     Dates: start: 20120410, end: 20120502

REACTIONS (1)
  - NEUTROPENIA [None]
